FAERS Safety Report 9195805 (Version 1)
Quarter: 2013Q1

REPORT INFORMATION
  Report Type: Spontaneous
  Country: US (occurrence: None)
  Receive Date: 20120703
  Receipt Date: 20120703
  Transmission Date: 20140127
  Serious: No
  Sender: FDA-Public Use
  Company Number: PHEH2012US010458

PATIENT
  Age: 43 Year
  Sex: Female
  Weight: 63 kg

DRUGS (4)
  1. GILENYA (FTY) CAPSULE, 0.5 MG [Suspect]
     Indication: MULTIPLE SCLEROSIS
     Route: 048
     Dates: start: 20120517
  2. SYNTHROID (LEVOTHYROXINE SODIUM) [Concomitant]
  3. CARBAMAZEPINE (CARBAMAZEPINE) [Concomitant]
  4. EMPURA [Concomitant]

REACTIONS (2)
  - Fatigue [None]
  - Heart rate decreased [None]
